FAERS Safety Report 7428670-4 (Version None)
Quarter: 2011Q2

REPORT INFORMATION
  Report Type: 
  Country: None (occurrence: None)
  Receive Date: 20110421
  Receipt Date: 20110413
  Transmission Date: 20111010
  Serious: Yes (Hospitalization)
  Sender: FDA-Public Use
  Company Number: US-BIOGENIDEC-2011BI014049

PATIENT
  Age: 62 Year
  Sex: Female

DRUGS (2)
  1. AVONEX [Suspect]
     Indication: MULTIPLE SCLEROSIS
     Route: 030
     Dates: end: 20060413
  2. AVONEX [Suspect]
     Route: 030
     Dates: start: 19960101

REACTIONS (8)
  - PERONEAL NERVE PALSY [None]
  - CONVULSION [None]
  - COORDINATION ABNORMAL [None]
  - GAIT DISTURBANCE [None]
  - BALANCE DISORDER [None]
  - URINARY INCONTINENCE [None]
  - PAIN IN EXTREMITY [None]
  - FAECAL INCONTINENCE [None]
